FAERS Safety Report 7436045-7 (Version None)
Quarter: 2011Q2

REPORT INFORMATION
  Report Type: 
  Country: None (occurrence: None)
  Receive Date: 20110418
  Receipt Date: 20110401
  Transmission Date: 20111010
  Serious: Yes (Congenital Anomaly)
  Sender: FDA-Public Use
  Company Number: 030959

PATIENT

DRUGS (4)
  1. VALPROIC ACID [Concomitant]
  2. LAMOTRIGINE [Concomitant]
  3. LEVETIRACETAM [Suspect]
     Indication: EPILEPSY
     Dosage: (DAILY DOSE: 1000 (UNITS UNSPECIFIED) TRANSPLACENTAL)
     Route: 064
  4. CLOBAZAM [Concomitant]

REACTIONS (2)
  - VENTRICULAR SEPTAL DEFECT [None]
  - MATERNAL DRUGS AFFECTING FOETUS [None]
